FAERS Safety Report 12394891 (Version 2)
Quarter: 2016Q2

REPORT INFORMATION
  Report Type: Report from Study
  Country: NL (occurrence: NL)
  Receive Date: 20160523
  Receipt Date: 20160617
  Transmission Date: 20160815
  Serious: Yes (Other)
  Sender: FDA-Public Use
  Company Number: NL-ABBVIE-16P-114-1633484-00

PATIENT
  Sex: Male
  Weight: 103 kg

DRUGS (1)
  1. DUODOPA [Suspect]
     Active Substance: CARBIDOPA\LEVODOPA
     Indication: PARKINSON^S DISEASE
     Dosage: MD: 9.5, CD: 4.3, ED: 2.0, ND: 3.6
     Route: 050
     Dates: start: 20130813

REACTIONS (2)
  - Cataract [Not Recovered/Not Resolved]
  - Cataract [Recovered/Resolved]
